FAERS Safety Report 18858734 (Version 1)
Quarter: 2021Q1

REPORT INFORMATION
  Report Type: Spontaneous
  Country: US (occurrence: US)
  Receive Date: 20210206
  Receipt Date: 20210206
  Transmission Date: 20210420
  Serious: Yes (Hospitalization, Other)
  Sender: FDA-Public Use
  Company Number: None

PATIENT
  Sex: Female

DRUGS (15)
  1. RIFAMPIN. [Concomitant]
     Active Substance: RIFAMPIN
  2. TAMOXIFEN [Concomitant]
     Active Substance: TAMOXIFEN
  3. CELECOXIB. [Concomitant]
     Active Substance: CELECOXIB
  4. VENLAFAXINE ER [Concomitant]
     Active Substance: VENLAFAXINE HYDROCHLORIDE
  5. ENOXAPARIN [Concomitant]
     Active Substance: ENOXAPARIN
  6. FENTANYL. [Concomitant]
     Active Substance: FENTANYL
  7. ATORVASTATIN [Concomitant]
     Active Substance: ATORVASTATIN
  8. OXYCODONE [Concomitant]
     Active Substance: OXYCODONE
  9. PANTOPRAZOLE [Concomitant]
     Active Substance: PANTOPRAZOLE
  10. AFINITOR [Suspect]
     Active Substance: EVEROLIMUS
     Indication: BREAST CANCER FEMALE
     Route: 048
     Dates: start: 20181229
  11. ZOLPIDEM [Concomitant]
     Active Substance: ZOLPIDEM TARTRATE
  12. METFORMIN [Concomitant]
     Active Substance: METFORMIN HYDROCHLORIDE
  13. FEROSUL [Concomitant]
     Active Substance: FERROUS SULFATE
  14. GABAPENTIN. [Concomitant]
     Active Substance: GABAPENTIN
  15. ONDANSETRON [Concomitant]
     Active Substance: ONDANSETRON

REACTIONS (1)
  - Surgery [None]
